FAERS Safety Report 12978914 (Version 2)
Quarter: 2017Q1

REPORT INFORMATION
  Report Type: Spontaneous
  Country: US (occurrence: US)
  Receive Date: 20161128
  Receipt Date: 20170109
  Transmission Date: 20170428
  Serious: No
  Sender: FDA-Public Use
  Company Number: US-PFIZER INC-2016545031

PATIENT
  Age: 48 Year
  Sex: Male

DRUGS (8)
  1. OXYMORPHONE [Concomitant]
     Active Substance: OXYMORPHONE
     Dosage: 20 MG, UNK
     Dates: start: 20161019
  2. XARELTO [Concomitant]
     Active Substance: RIVAROXABAN
     Indication: THROMBOSIS
     Dosage: 20 MG, 1X/DAY
     Dates: start: 20161025
  3. HYDROMORPHONE [Concomitant]
     Active Substance: HYDROMORPHONE
     Indication: PAIN MANAGEMENT
     Dosage: 15 MG, 2X/DAY
     Dates: start: 201610
  4. GABAPENTIN. [Concomitant]
     Active Substance: GABAPENTIN
     Dosage: 2700 MG, UNK
     Dates: start: 20160523, end: 20161219
  5. EFFEXOR XR [Suspect]
     Active Substance: VENLAFAXINE HYDROCHLORIDE
     Dosage: 37.5 MG, 1X/DAY
     Dates: start: 201611, end: 20161116
  6. EFFEXOR XR [Suspect]
     Active Substance: VENLAFAXINE HYDROCHLORIDE
     Dosage: 37.5 MG, 2X/DAY
     Dates: start: 20160908
  7. HYDROMORPHONE [Concomitant]
     Active Substance: HYDROMORPHONE
     Indication: PAIN MANAGEMENT
     Dosage: 5 MG, TWO TO THREE TIMES PER DAY
     Dates: start: 201610
  8. OXYMORPHONE [Concomitant]
     Active Substance: OXYMORPHONE
     Dosage: 5 MG, UNK
     Dates: start: 20161019

REACTIONS (2)
  - Neuralgia [Recovered/Resolved]
  - Product use issue [Recovered/Resolved]

NARRATIVE: CASE EVENT DATE: 2016
